FAERS Safety Report 8488232-7 (Version None)
Quarter: 2012Q3

REPORT INFORMATION
  Report Type: 
  Country: None (occurrence: None)
  Receive Date: 20120705
  Receipt Date: 20120629
  Transmission Date: 20120928
  Serious: Yes (Hospitalization, Other)
  Sender: FDA-Public Use
  Company Number: US-BAYER-2012-009597

PATIENT
  Age: 16 Year
  Sex: Female
  Weight: 66.213 kg

DRUGS (6)
  1. YAZ [Suspect]
     Indication: ACNE
     Dosage: UNK
     Dates: start: 20091001, end: 20091226
  2. MOTRIN [Concomitant]
     Indication: PAIN
  3. IBUPROFEN (ADVIL) [Concomitant]
  4. YAZ [Suspect]
     Indication: MENSTRUAL CYCLE MANAGEMENT
  5. DOXYCYCLINE HYCLATE [Concomitant]
  6. YAZ [Suspect]
     Indication: PREMENSTRUAL SYNDROME

REACTIONS (8)
  - DEEP VEIN THROMBOSIS [None]
  - ILIAC VEIN OCCLUSION [None]
  - OEDEMA PERIPHERAL [None]
  - GENERAL PHYSICAL HEALTH DETERIORATION [None]
  - PULMONARY EMBOLISM [None]
  - PAIN IN EXTREMITY [None]
  - EMOTIONAL DISTRESS [None]
  - MUSCULAR WEAKNESS [None]
